FAERS Safety Report 16994998 (Version 1)
Quarter: 2019Q4

REPORT INFORMATION
  Report Type: Spontaneous
  Country: US (occurrence: US)
  Receive Date: 20191105
  Receipt Date: 20191105
  Transmission Date: 20200122
  Serious: No
  Sender: FDA-Public Use
  Company Number: US-009507513-1911USA001091

PATIENT
  Age: 78 Year
  Sex: Female

DRUGS (9)
  1. ASCORBIC ACID. [Concomitant]
     Active Substance: ASCORBIC ACID
  2. ATIVAN [Concomitant]
     Active Substance: LORAZEPAM
     Dosage: UNK, AS NEEDED
  3. ELIQUIS [Concomitant]
     Active Substance: APIXABAN
  4. REMERON [Suspect]
     Active Substance: MIRTAZAPINE
     Dosage: UNK, QD (ONCE A DAY AT BEDTIME)
     Route: 048
     Dates: start: 201902
  5. VITAMIN B (UNSPECIFIED) [Concomitant]
     Active Substance: VITAMIN B
  6. VITAMIN D (UNSPECIFIED) [Concomitant]
     Active Substance: VITAMIN D NOS
  7. IRON (UNSPECIFIED) [Concomitant]
     Active Substance: IRON
  8. FOSAMAX [Concomitant]
     Active Substance: ALENDRONATE SODIUM
  9. NORVASC [Concomitant]
     Active Substance: AMLODIPINE BESYLATE

REACTIONS (3)
  - Decreased appetite [Not Recovered/Not Resolved]
  - Weight decreased [Not Recovered/Not Resolved]
  - Depression [Not Recovered/Not Resolved]

NARRATIVE: CASE EVENT DATE: 201909
